FAERS Safety Report 13550693 (Version 3)
Quarter: 2017Q2

REPORT INFORMATION
  Report Type: Report from Study
  Country: US (occurrence: US)
  Receive Date: 20170516
  Receipt Date: 20170620
  Transmission Date: 20170830
  Serious: Yes (Death, Hospitalization)
  Sender: FDA-Public Use
  Company Number: US-BAYER-2017-075191

PATIENT
  Age: 62 Year
  Sex: Male

DRUGS (13)
  1. NEXAVAR [Suspect]
     Active Substance: SORAFENIB
     Indication: HEPATIC CANCER
     Dosage: 400 MG, BID
     Route: 048
  2. PREDNISONE. [Concomitant]
     Active Substance: PREDNISONE
  3. TAMSULOSIN [Concomitant]
     Active Substance: TAMSULOSIN
  4. VIREAD [Concomitant]
     Active Substance: TENOFOVIR DISOPROXIL FUMARATE
  5. LEVOFLOXACIN. [Concomitant]
     Active Substance: LEVOFLOXACIN
  6. HYDROCODONE BITARTRATE. [Concomitant]
     Active Substance: HYDROCODONE BITARTRATE
  7. FERROUS SULFATE. [Concomitant]
     Active Substance: FERROUS SULFATE
  8. LACTULOSE. [Concomitant]
     Active Substance: LACTULOSE
  9. NEXAVAR [Suspect]
     Active Substance: SORAFENIB
     Indication: HEPATIC CANCER
     Dosage: 400 MG, BID, TAKE WHOLE CON WATER ON AN EMPTY STOMACH, 1 HOUR BEFORE OR 2 HOURS AFTER FOOD
     Route: 048
     Dates: start: 201703
  10. NEXAVAR [Suspect]
     Active Substance: SORAFENIB
     Indication: GASTROINTESTINAL NEOPLASM
     Dosage: 400 MG, BID, TAKE WHOLE CON WATER ON AN EMPTY STOMACH, 1 HOUR BEFORE OR 2 HOURS AFTER FOOD
     Route: 048
     Dates: start: 20170404
  11. LASIX [Concomitant]
     Active Substance: FUROSEMIDE
  12. PANTOPRAZOLE [Concomitant]
     Active Substance: PANTOPRAZOLE
  13. OMEPRAZOLE. [Concomitant]
     Active Substance: OMEPRAZOLE

REACTIONS (18)
  - Death [Fatal]
  - Jaundice [Not Recovered/Not Resolved]
  - Constipation [Recovered/Resolved]
  - Pyrexia [Not Recovered/Not Resolved]
  - Drug dose omission [None]
  - Abdominal tenderness [Unknown]
  - Peripheral swelling [Recovering/Resolving]
  - Ascites [None]
  - Dyspnoea [Recovered/Resolved]
  - Pain [Recovered/Resolved]
  - Cholelithiasis [None]
  - Rash generalised [Recovered/Resolved]
  - Skin exfoliation [Not Recovered/Not Resolved]
  - Mobility decreased [Recovered/Resolved]
  - Joint swelling [Recovering/Resolving]
  - Abdominal pain [Unknown]
  - Fatigue [Not Recovered/Not Resolved]
  - Ocular icterus [Not Recovered/Not Resolved]

NARRATIVE: CASE EVENT DATE: 2017
